FAERS Safety Report 7531269 (Version 4)
Quarter: 2013Q4

REPORT INFORMATION
  Report Type: Spontaneous
  Country: US (occurrence: US)
  Receive Date: 20100806
  Receipt Date: 20131216
  Transmission Date: 20140711
  Serious: Yes (Hospitalization, Other)
  Sender: FDA-Public Use
  Company Number: US-BAYER-201029619NA

PATIENT
  Age: 37 Year
  Sex: Female
  Weight: 63 kg

DRUGS (2)
  1. YAZ [Suspect]
     Indication: CONTRACEPTION
     Dosage: UNK UNK, UNK
     Route: 048
     Dates: start: 200205, end: 200906
  2. YASMIN [Suspect]
     Indication: CONTRACEPTION
     Dosage: UNK UNK, UNK
     Route: 048
     Dates: start: 200205, end: 200906

REACTIONS (6)
  - Cholelithiasis [Unknown]
  - Cholecystitis chronic [None]
  - Pancreatitis [None]
  - Pregnancy on oral contraceptive [None]
  - Abortion spontaneous [None]
  - Drug ineffective [None]
